FAERS Safety Report 24777141 (Version 2)
Quarter: 2025Q1

REPORT INFORMATION
  Report Type: Spontaneous
  Country: IT (occurrence: IT)
  Receive Date: 20241226
  Receipt Date: 20250107
  Transmission Date: 20250408
  Serious: Yes (Other)
  Sender: TEVA
  Company Number: IT-TEVA-VS-3278077

PATIENT
  Age: 44 Year
  Sex: Male

DRUGS (9)
  1. MYCOPHENOLATE MOFETIL [Suspect]
     Active Substance: MYCOPHENOLATE MOFETIL
     Indication: Chronic cutaneous lupus erythematosus
     Route: 065
  2. BRODALUMAB [Suspect]
     Active Substance: BRODALUMAB
     Indication: Chronic cutaneous lupus erythematosus
     Route: 065
  3. RISANKIZUMAB [Suspect]
     Active Substance: RISANKIZUMAB
     Indication: Chronic cutaneous lupus erythematosus
     Route: 065
  4. QUINACRINE [Suspect]
     Active Substance: QUINACRINE
     Indication: Chronic cutaneous lupus erythematosus
     Route: 065
  5. THALIDOMIDE [Suspect]
     Active Substance: THALIDOMIDE
     Indication: Chronic cutaneous lupus erythematosus
     Route: 065
  6. METHOTREXATE [Suspect]
     Active Substance: METHOTREXATE
     Indication: Chronic cutaneous lupus erythematosus
     Route: 065
  7. DAPSONE [Suspect]
     Active Substance: DAPSONE
     Indication: Chronic cutaneous lupus erythematosus
     Route: 065
  8. UPADACITINIB [Suspect]
     Active Substance: UPADACITINIB
     Indication: Chronic cutaneous lupus erythematosus
     Route: 048
  9. UPADACITINIB [Suspect]
     Active Substance: UPADACITINIB
     Indication: Chronic cutaneous lupus erythematosus
     Route: 048

REACTIONS (2)
  - Dermatitis acneiform [Recovered/Resolved]
  - Drug ineffective [Unknown]
